FAERS Safety Report 9425253 (Version 1)
Quarter: 2013Q3

REPORT INFORMATION
  Report Type: Spontaneous
  Country: AU (occurrence: AU)
  Receive Date: 20130729
  Receipt Date: 20130729
  Transmission Date: 20140515
  Serious: Yes (Life-Threatening)
  Sender: FDA-Public Use
  Company Number: AU-BAXTER-2013BAX029155

PATIENT
  Age: 60 Year
  Sex: Female

DRUGS (2)
  1. BAXTER 5% GLUCOSE 12.5G_250ML INJECTION BP BAG AHB0062 [Suspect]
     Indication: PRODUCT USED FOR UNKNOWN INDICATION
     Route: 065
  2. OXALIPLATIN [Suspect]
     Indication: PRODUCT USED FOR UNKNOWN INDICATION
     Route: 065

REACTIONS (6)
  - Asthenopia [Recovering/Resolving]
  - Ocular discomfort [Recovering/Resolving]
  - Dyspnoea [Recovering/Resolving]
  - Swollen tongue [Recovering/Resolving]
  - Abdominal pain [Recovering/Resolving]
  - Dysphonia [Unknown]
